FAERS Safety Report 19953574 (Version 11)
Quarter: 2022Q2

REPORT INFORMATION
  Report Type: Report from Study
  Country: JP (occurrence: None)
  Receive Date: 20211013
  Receipt Date: 20220523
  Transmission Date: 20220721
  Serious: Yes (Hospitalization)
  Sender: FDA-Public Use
  Company Number: JP-EISAI MEDICAL RESEARCH-EC-2021-101133

PATIENT
  Age: 56 Year
  Sex: Male
  Weight: 74.4 kg

DRUGS (23)
  1. LENVATINIB [Suspect]
     Active Substance: LENVATINIB
     Indication: Gastrooesophageal cancer
     Route: 048
     Dates: start: 20210907, end: 20211001
  2. LENVATINIB [Suspect]
     Active Substance: LENVATINIB
     Dosage: STARTING AT 6 MG, FLUCTUATED DOSAGE
     Route: 048
     Dates: start: 20211130, end: 20220222
  3. PEMBROLIZUMAB [Suspect]
     Active Substance: PEMBROLIZUMAB
     Indication: Gastrooesophageal cancer
     Route: 041
     Dates: start: 20210907, end: 20210907
  4. PEMBROLIZUMAB [Suspect]
     Active Substance: PEMBROLIZUMAB
     Route: 041
     Dates: start: 20211130, end: 20220202
  5. CAPECITABINE [Suspect]
     Active Substance: CAPECITABINE
     Indication: Gastrooesophageal cancer
     Dosage: TWICE A DAY (BID) FOR 14 DAYS, EVERY 3 WEEKS FOR 4 CYCLES
     Route: 048
     Dates: start: 20210907, end: 20211001
  6. CAPECITABINE [Suspect]
     Active Substance: CAPECITABINE
     Dosage: TWICE A DAY (BID) FOR 14 DAYS, EVERY 3 WEEKS FOR 4 CYCLES
     Route: 048
     Dates: start: 20211130, end: 20220126
  7. OXALIPLATIN [Suspect]
     Active Substance: OXALIPLATIN
     Indication: Gastrooesophageal cancer
     Route: 042
     Dates: start: 20210907, end: 20210907
  8. OXALIPLATIN [Suspect]
     Active Substance: OXALIPLATIN
     Route: 042
     Dates: start: 20210928, end: 20210928
  9. OXALIPLATIN [Suspect]
     Active Substance: OXALIPLATIN
     Route: 042
     Dates: start: 20211130, end: 20220112
  10. CARVEDILOL [Concomitant]
     Active Substance: CARVEDILOL
     Dates: start: 202108
  11. AMLODIPINE [Concomitant]
     Active Substance: AMLODIPINE BESYLATE
     Dates: start: 202108
  12. ATORVASTATIN [Concomitant]
     Active Substance: ATORVASTATIN
     Dates: start: 202108
  13. XARELTO [Concomitant]
     Active Substance: RIVAROXABAN
     Dates: start: 202108
  14. LOXOPROFEN SODIUM [Concomitant]
     Active Substance: LOXOPROFEN SODIUM
     Dates: start: 20210920
  15. FAMOTIDINE [Concomitant]
     Active Substance: FAMOTIDINE
     Route: 042
     Dates: start: 20210928, end: 20210928
  16. DEXAMETHASONE SODIUM PHOSPHATE [Concomitant]
     Active Substance: DEXAMETHASONE SODIUM PHOSPHATE
     Route: 042
     Dates: start: 20210928, end: 20210928
  17. ALOXI [Concomitant]
     Active Substance: PALONOSETRON HYDROCHLORIDE
     Route: 042
     Dates: start: 20210928, end: 20210928
  18. EMEND [Concomitant]
     Active Substance: APREPITANT
     Dates: start: 20210928, end: 20220114
  19. EMEND [Concomitant]
     Active Substance: APREPITANT
     Dates: start: 20210929, end: 20210930
  20. POLARAMINE [Concomitant]
     Active Substance: DEXCHLORPHENIRAMINE MALEATE
     Route: 042
     Dates: start: 20210928, end: 20210928
  21. DECADRON [Concomitant]
     Active Substance: DEXAMETHASONE
     Dates: start: 20210929, end: 20210930
  22. RINDERON V [Concomitant]
     Active Substance: BETAMETHASONE VALERATE
     Dates: start: 20210928
  23. RESTAMIN [DIPHENHYDRAMINE HYDROCHLORIDE] [Concomitant]
     Dates: start: 20210928

REACTIONS (2)
  - Erythema multiforme [Recovered/Resolved]
  - Diarrhoea [Recovered/Resolved]

NARRATIVE: CASE EVENT DATE: 20211002
